FAERS Safety Report 6913034-X (Version None)
Quarter: 2010Q3

REPORT INFORMATION
  Report Type: 
  Country: None (occurrence: None)
  Receive Date: 20100806
  Receipt Date: 20090616
  Transmission Date: 20110219
  Serious: No
  Sender: FDA-Public Use
  Company Number: US-PFIZER INC-2009188088

PATIENT
  Sex: Female
  Weight: 55.3 kg

DRUGS (4)
  1. NORPACE [Suspect]
     Indication: ARRHYTHMIA SUPRAVENTRICULAR
     Dosage: 300 MG, 2X/DAY
     Route: 048
     Dates: start: 20090224, end: 20090301
  2. NEBIVOLOL [Suspect]
     Indication: CONSTIPATION
     Dates: start: 20090301, end: 20090301
  3. HYDROCHLOROTHIAZIDE [Concomitant]
  4. NORVASC [Concomitant]
     Dosage: UNK

REACTIONS (10)
  - ABDOMINAL DISTENSION [None]
  - ABDOMINAL PAIN [None]
  - BLOOD PRESSURE DECREASED [None]
  - CONSTIPATION [None]
  - DIZZINESS [None]
  - DRY MOUTH [None]
  - FATIGUE [None]
  - HEART RATE DECREASED [None]
  - PAIN IN EXTREMITY [None]
  - VISION BLURRED [None]
